FAERS Safety Report 5000466-2 (Version None)
Quarter: 2006Q2

REPORT INFORMATION
  Report Type: 
  Country: None (occurrence: None)
  Receive Date: 20060512
  Receipt Date: 20060501
  Transmission Date: 20061013
  Serious: Yes (Death)
  Sender: FDA-Public Use
  Company Number: GB-JNJFOC-20040600686

PATIENT
  Age: 61 Year
  Sex: Female

DRUGS (6)
  1. REMICADE [Suspect]
     Route: 042
  2. REMICADE [Suspect]
     Indication: RHEUMATOID ARTHRITIS
     Route: 042
  3. AZATHIOPRINE [Interacting]
     Route: 065
  4. AZATHIOPRINE [Interacting]
     Indication: RHEUMATOID ARTHRITIS
     Route: 065
  5. PREDNISOLONE [Concomitant]
  6. PREDNISOLONE [Concomitant]
     Indication: RHEUMATOID ARTHRITIS

REACTIONS (3)
  - ALVEOLITIS FIBROSING [None]
  - DISEASE PROGRESSION [None]
  - DRUG INTERACTION [None]
